FAERS Safety Report 5165438-6 (Version None)
Quarter: 2006Q4

REPORT INFORMATION
  Report Type: 
  Country: None (occurrence: None)
  Receive Date: 20061116
  Receipt Date: 20061103
  Transmission Date: 20070319
  Serious: Yes (Death)
  Sender: FDA-Public Use
  Company Number: 2006BH014532

PATIENT
  Age: 19 Year
  Sex: Female
  Weight: 52.1637 kg

DRUGS (4)
  1. ANTICOAGULANT CITRATE DEXTROSE [Suspect]
     Indication: PLASMAPHERESIS
     Dosage: 250 ML; UNK; UNK
  2. SODIUM CHLORIDE 0.9% [Suspect]
     Indication: PLASMAPHERESIS
     Dosage: 500 ML; UNK; UNK
  3. ANTI-CONTRACEPTIVE MEDICATIONS [Concomitant]
  4. MEDICATIONS [Concomitant]

REACTIONS (2)
  - POST PROCEDURAL COMPLICATION [None]
  - SUDDEN DEATH [None]
